FAERS Safety Report 9294662 (Version 2)
Quarter: 2013Q2

REPORT INFORMATION
  Report Type: Spontaneous
  Country: IT (occurrence: IT)
  Receive Date: 20130517
  Receipt Date: 20130517
  Transmission Date: 20140414
  Serious: Yes (Hospitalization)
  Sender: FDA-Public Use
  Company Number: IT-ABBOTT-13X-083-1087844-00

PATIENT
  Age: 73 Year
  Sex: Male

DRUGS (3)
  1. KLACID [Suspect]
     Indication: PYREXIA
     Dates: start: 20130121, end: 20130123
  2. ROCEFIN [Suspect]
     Indication: PYREXIA
     Route: 030
     Dates: start: 20130117, end: 20130123
  3. PARACETAMOL [Concomitant]
     Indication: PRODUCT USED FOR UNKNOWN INDICATION

REACTIONS (3)
  - Pyrexia [Unknown]
  - Blood creatinine increased [Not Recovered/Not Resolved]
  - Drug resistance [Unknown]
